FAERS Safety Report 4330595-8 (Version None)
Quarter: 2004Q1

REPORT INFORMATION
  Report Type: 
  Country: None (occurrence: None)
  Receive Date: 20040329
  Receipt Date: 20040311
  Transmission Date: 20041129
  Serious: Yes (Hospitalization)
  Sender: FDA-Public Use
  Company Number: 23323

PATIENT
  Age: 47 Year
  Sex: Male

DRUGS (4)
  1. FLECAINIDE ACETATE [Suspect]
     Dosage: 50 MG (50 MG, 1 ORAL)
     Route: 048
  2. SOTALOL HCL [Suspect]
     Dosage: 2 IN 1 ORAL
     Route: 048
     Dates: start: 19920101
  3. HYDROCORTISONE [Concomitant]
  4. PREDNISONE [Suspect]

REACTIONS (5)
  - CHOLESTASIS [None]
  - CHRONIC HEPATITIS [None]
  - HEPATIC NECROSIS [None]
  - HEPATITIS ACUTE [None]
  - Q FEVER [None]
